FAERS Safety Report 7543203-X (Version None)
Quarter: 2011Q2

REPORT INFORMATION
  Report Type: 
  Country: None (occurrence: None)
  Receive Date: 20110524
  Receipt Date: 20110304
  Transmission Date: 20111010
  Serious: No
  Sender: FDA-Public Use
  Company Number: 024636

PATIENT
  Sex: Female

DRUGS (1)
  1. CIMZIA [Suspect]
     Indication: CROHN'S DISEASE
     Dosage: (400 MG 1X/2 WEEKS SUBCUTANEOUS)
     Route: 058
     Dates: start: 20080917

REACTIONS (6)
  - ABDOMINAL PAIN [None]
  - PARAESTHESIA [None]
  - ARTHRALGIA [None]
  - FATIGUE [None]
  - MALAISE [None]
  - PELVIC PAIN [None]
